FAERS Safety Report 16785362 (Version 1)
Quarter: 2019Q3

REPORT INFORMATION
  Report Type: Report from Study
  Country: US (occurrence: US)
  Receive Date: 20190909
  Receipt Date: 20190909
  Transmission Date: 20191005
  Serious: Yes (Hospitalization)
  Sender: FDA-Public Use
  Company Number: PHHO2019US008736

PATIENT
  Age: 68 Year
  Sex: Male
  Weight: 116.1 kg

DRUGS (2)
  1. PAZOPANIB [Suspect]
     Active Substance: PAZOPANIB
     Indication: RENAL CANCER
     Dosage: 400 MG, QD FOR 28 DAYS
     Route: 048
     Dates: start: 20180612, end: 20190825
  2. BEVACIZUMAB. [Suspect]
     Active Substance: BEVACIZUMAB
     Indication: RENAL CANCER
     Dosage: 5 MG/KG, WEEKS 5 AND 7
     Route: 042
     Dates: start: 20180717, end: 20190716

REACTIONS (2)
  - Diarrhoea [Recovering/Resolving]
  - Acute kidney injury [Unknown]

NARRATIVE: CASE EVENT DATE: 20190825
